FAERS Safety Report 13954480 (Version 10)
Quarter: 2017Q4

REPORT INFORMATION
  Report Type: Spontaneous
  Country: US (occurrence: US)
  Receive Date: 20170911
  Receipt Date: 20171204
  Transmission Date: 20180320
  Serious: Yes (Death, Hospitalization)
  Sender: FDA-Public Use
  Company Number: US-UNITED THERAPEUTICS-UNT-2017-012896

PATIENT
  Age: 67 Year
  Sex: Female
  Weight: 65.31 kg

DRUGS (5)
  1. REMODULIN [Suspect]
     Active Substance: TREPROSTINIL
     Indication: PULMONARY HYPERTENSION
     Dosage: 0.0805 ?G/KG, CONTINUING
     Route: 058
     Dates: start: 20160211
  2. ELIQUIS [Suspect]
     Active Substance: APIXABAN
     Indication: PRODUCT USED FOR UNKNOWN INDICATION
     Route: 065
  3. REMODULIN [Suspect]
     Active Substance: TREPROSTINIL
     Indication: PULMONARY ARTERIAL HYPERTENSION
     Dosage: UNK
     Route: 058
  4. OFEV [Concomitant]
     Active Substance: NINTEDANIB
     Indication: PRODUCT USED FOR UNKNOWN INDICATION
     Route: 065
  5. ADCIRCA [Concomitant]
     Active Substance: TADALAFIL
     Indication: PRODUCT USED FOR UNKNOWN INDICATION
     Route: 065

REACTIONS (13)
  - Vomiting [Unknown]
  - Anaemia [Unknown]
  - Dehydration [Unknown]
  - Renal failure [Unknown]
  - Renal disorder [Unknown]
  - Infusion site swelling [Unknown]
  - Cough [Unknown]
  - Lymphadenopathy [Unknown]
  - Dyspnoea [Unknown]
  - Disease progression [Fatal]
  - Lung neoplasm malignant [Fatal]
  - Post procedural haemorrhage [Not Recovered/Not Resolved]
  - Pericardial effusion [Unknown]

NARRATIVE: CASE EVENT DATE: 2017
